FAERS Safety Report 6154463-4 (Version None)
Quarter: 2009Q2

REPORT INFORMATION
  Report Type: 
  Country: None (occurrence: None)
  Receive Date: 20090414
  Receipt Date: 20090410
  Transmission Date: 20091009
  Serious: Yes (Hospitalization, Other)
  Sender: FDA-Public Use
  Company Number: JP-BRISTOL-MYERS SQUIBB COMPANY-14451470

PATIENT
  Age: 17 Year
  Sex: Male

DRUGS (3)
  1. BARACLUDE [Suspect]
     Indication: HEPATITIS B
     Route: 048
     Dates: start: 20081212, end: 20090403
  2. HEPSERA [Suspect]
     Route: 048
     Dates: start: 20090116, end: 20090206
  3. VIREAD [Suspect]
     Route: 048
     Dates: start: 20080301

REACTIONS (3)
  - NEUTROPHIL COUNT DECREASED [None]
  - PYREXIA [None]
  - RASH [None]
